FAERS Safety Report 24844970 (Version 1)
Quarter: 2025Q1

REPORT INFORMATION
  Report Type: Spontaneous
  Country: US (occurrence: None)
  Receive Date: 20250114
  Receipt Date: 20250114
  Transmission Date: 20250409
  Serious: Yes (Death)
  Sender: FDA-CTU
  Company Number: None

PATIENT
  Age: 32 Year
  Sex: Female
  Weight: 119.7 kg

DRUGS (4)
  1. METHADONE [Suspect]
     Active Substance: METHADONE HYDROCHLORIDE
     Indication: Drug dependence
     Dosage: FREQUENCY : DAILY;?
     Route: 048
     Dates: end: 20240914
  2. HYDROXYZINE [Suspect]
     Active Substance: HYDROXYZINE HYDROCHLORIDE
     Dosage: FREQUENCY : 4 TIMES A DAY;?
     Route: 048
     Dates: end: 20240914
  3. FLUOXETINE [Suspect]
     Active Substance: FLUOXETINE HYDROCHLORIDE
     Dates: end: 20240914
  4. OXCARBAZEPINE [Suspect]
     Active Substance: OXCARBAZEPINE
     Dates: end: 20240914

REACTIONS (6)
  - Analgesic drug level increased [None]
  - Arrhythmia [None]
  - Contraindicated product administered [None]
  - Sudden cardiac death [None]
  - Dyspepsia [None]
  - Dysstasia [None]

NARRATIVE: CASE EVENT DATE: 20240914
